FAERS Safety Report 6217977-4 (Version None)
Quarter: 2009Q2

REPORT INFORMATION
  Report Type: 
  Country: None (occurrence: None)
  Receive Date: 20090604
  Receipt Date: 20090604
  Transmission Date: 20091009
  Serious: Yes (Hospitalization)
  Sender: FDA-Public Use
  Company Number: None

PATIENT
  Sex: Male

DRUGS (3)
  1. TOPIRAMATE [Suspect]
     Indication: CONVULSION
     Dosage: 200MG TWICE A DAY PO
     Route: 048
     Dates: start: 20090420, end: 20090520
  2. CEFDINIR [Concomitant]
  3. SINGULAIR [Concomitant]

REACTIONS (1)
  - CEREBROVASCULAR ACCIDENT [None]
